FAERS Safety Report 7386912-8 (Version None)
Quarter: 2011Q1

REPORT INFORMATION
  Report Type: 
  Country: None (occurrence: None)
  Receive Date: 20110331
  Receipt Date: 20081020
  Transmission Date: 20110831
  Serious: Yes (Death, Hospitalization, Other)
  Sender: FDA-Public Use
  Company Number: US-BAYER-201038651NA

PATIENT
  Sex: Male
  Weight: 74.83 kg

DRUGS (23)
  1. DOPAMINE HCL [Concomitant]
     Dosage: 400MG/250ML ;23 ML
     Route: 042
     Dates: start: 20061104, end: 20061104
  2. PLATELETS [Concomitant]
  3. NITROGLYCERIN [Concomitant]
     Dosage: 50MG/250ML;4ML
     Route: 042
     Dates: start: 20061104, end: 20061104
  4. VASOPRESSIN [VASOPRESSIN] [Concomitant]
     Dosage: 100U/250ML ;140ML
     Route: 042
     Dates: start: 20061104, end: 20061104
  5. DESMOPRESSIN ACETATE [Concomitant]
     Dosage: 18MCG
     Route: 042
     Dates: start: 20061104, end: 20061104
  6. VANCOMYCIN [Concomitant]
     Dosage: 1000 MG, UNK
     Route: 042
     Dates: start: 20061104, end: 20061104
  7. MANNITOL [Concomitant]
     Dosage: 50 G, UNK
     Route: 042
     Dates: start: 20061104, end: 20061104
  8. TRASYLOL [Suspect]
     Indication: CORONARY ARTERY BYPASS
     Dosage: INTIAL DOSE:2ML
     Route: 042
     Dates: start: 20061104, end: 20061104
  9. HEPARIN SODIUM [Concomitant]
     Dosage: UNK
     Route: 042
     Dates: start: 20061104, end: 20061104
  10. FRESH FROZEN PLASMA [Concomitant]
     Dosage: 2262 CC
  11. AMIODARONE HCL [Concomitant]
     Dosage: 300 MG, UNK
     Route: 042
     Dates: start: 20061104, end: 20061104
  12. EPINEPHRINE [Concomitant]
     Dosage: 2000 MCG
     Route: 042
     Dates: start: 20061104, end: 20061104
  13. NOREPINEPHRINE BITARTRATE [Concomitant]
     Dosage: 8 MG/100ML ;159 ML
     Route: 042
     Dates: start: 20061104, end: 20061104
  14. CRYOPRECIPITATES [Concomitant]
     Dosage: 367CC
  15. MIDAZOLAM HCL [Concomitant]
     Dosage: 10 MG, UNK
     Route: 042
     Dates: start: 20061104, end: 20061104
  16. SCOPOLAMINE [Concomitant]
     Dosage: 0.4 MG, UNK
     Route: 042
     Dates: start: 20061104, end: 20061104
  17. PROPOFOL [Suspect]
     Dosage: 138.4 MG, UNK
     Route: 042
     Dates: start: 20061104, end: 20061104
  18. PHENYLEPHRINE HCL [Concomitant]
     Dosage: 20,400MCG
     Route: 042
     Dates: start: 20061104, end: 20061104
  19. TRASYLOL [Suspect]
     Dosage: 98 ML LOADING DOSE
     Dates: start: 20061104, end: 20061104
  20. TRASYLOL [Suspect]
     Dosage: 25 ML, Q1HR
     Route: 042
     Dates: start: 20061104, end: 20061104
  21. ETOMIDATE [Concomitant]
     Dosage: 14 MG, UNK
     Dates: start: 20061104, end: 20061104
  22. LASIX [Concomitant]
     Dosage: 40 MG, UNK
     Route: 042
     Dates: start: 20061104, end: 20061104
  23. NOVOSEVEN [Concomitant]

REACTIONS (17)
  - INJURY [None]
  - UNEVALUABLE EVENT [None]
  - RENAL IMPAIRMENT [None]
  - RENAL FAILURE [None]
  - PAIN [None]
  - MYOCARDIAL INFARCTION [None]
  - CORONARY ARTERY DISEASE [None]
  - MULTI-ORGAN FAILURE [None]
  - CEREBROVASCULAR ACCIDENT [None]
  - CARDIAC FAILURE [None]
  - FEAR [None]
  - RENAL INJURY [None]
  - EMOTIONAL DISORDER [None]
  - VENTRICULAR TACHYCARDIA [None]
  - CARDIO-RESPIRATORY ARREST [None]
  - STRESS [None]
  - ANXIETY [None]
